FAERS Safety Report 7464126-0 (Version None)
Quarter: 2011Q2

REPORT INFORMATION
  Report Type: 
  Country: None (occurrence: None)
  Receive Date: 20110506
  Receipt Date: 20101104
  Transmission Date: 20111010
  Serious: No
  Sender: FDA-Public Use
  Company Number: US-AMGEN-USASP2010000197

PATIENT
  Age: 40 Year
  Sex: Female
  Weight: 81.633 kg

DRUGS (7)
  1. IBUPROFEN (ADVIL) [Concomitant]
     Dosage: 600 MG, INTERMITTENT
  2. ESTROVEN MULTI-VITAMIN [Concomitant]
  3. METHOTREXATE [Concomitant]
  4. LEVOTHYROXINE SODIUM [Concomitant]
     Dosage: 50 UNK, QD
  5. FIORICET [Concomitant]
     Dosage: UNK UNK, PRN
  6. ENBREL [Suspect]
     Indication: RHEUMATOID ARTHRITIS
     Dosage: 50 MG, QWK
     Route: 058
     Dates: start: 20091215, end: 20101009
  7. VICODIN [Concomitant]
     Dosage: UNK UNK, QWK

REACTIONS (10)
  - NASAL CONGESTION [None]
  - SINUSITIS [None]
  - INJECTION SITE REACTION [None]
  - TRANSAMINASES INCREASED [None]
  - PYREXIA [None]
  - MUSCULOSKELETAL STIFFNESS [None]
  - ARTHRALGIA [None]
  - DRY EYE [None]
  - DRY MOUTH [None]
  - MIGRAINE [None]
